FAERS Safety Report 23896979 (Version 1)
Quarter: 2024Q2

REPORT INFORMATION
  Report Type: Spontaneous
  Country: US (occurrence: US)
  Receive Date: 20240524
  Receipt Date: 20240524
  Transmission Date: 20240716
  Serious: No
  Sender: FDA-Public Use
  Company Number: US-PFIZER INC-202400174888

PATIENT
  Age: 77 Year
  Sex: Male
  Weight: 145 kg

DRUGS (1)
  1. ETOMIDATE [Suspect]
     Active Substance: ETOMIDATE
     Dosage: UNK

REACTIONS (3)
  - Haemoptysis [Unknown]
  - Retching [Recovered/Resolved]
  - Drug intolerance [Unknown]
